FAERS Safety Report 8161843-4 (Version None)
Quarter: 2012Q1

REPORT INFORMATION
  Report Type: 
  Country: None (occurrence: None)
  Receive Date: 20120224
  Receipt Date: 20110723
  Transmission Date: 20120608
  Serious: No
  Sender: FDA-Public Use
  Company Number: US-BRISTOL-MYERS SQUIBB COMPANY-15902133

PATIENT
  Age: 66 Year
  Sex: Female

DRUGS (3)
  1. LEVEMIR [Suspect]
  2. GLUCOPHAGE [Suspect]
  3. VICTOZA [Suspect]

REACTIONS (2)
  - DRUG INEFFECTIVE [None]
  - GLYCOSYLATED HAEMOGLOBIN INCREASED [None]
